FAERS Safety Report 21815810 (Version 2)
Quarter: 2023Q1

REPORT INFORMATION
  Report Type: Spontaneous
  Country: US (occurrence: US)
  Receive Date: 20230104
  Receipt Date: 20230113
  Transmission Date: 20230417
  Serious: Yes (Life-Threatening, Hospitalization, Other)
  Sender: FDA-Public Use
  Company Number: US-AMGEN-USASP2022211088

PATIENT
  Age: 53 Year
  Sex: Male

DRUGS (1)
  1. REPATHA [Suspect]
     Active Substance: EVOLOCUMAB
     Indication: Product used for unknown indication
     Dosage: UNK
     Route: 065
     Dates: start: 2020

REACTIONS (7)
  - Pneumonia bacterial [Recovering/Resolving]
  - Myocardial infarction [Recovering/Resolving]
  - Staphylococcal infection [Recovering/Resolving]
  - Neuropathy peripheral [Recovering/Resolving]
  - Cardiac disorder [Recovering/Resolving]
  - Tendon rupture [Recovering/Resolving]
  - Hypoaesthesia [Recovering/Resolving]

NARRATIVE: CASE EVENT DATE: 20200101
